FAERS Safety Report 5017887-4 (Version None)
Quarter: 2006Q2

REPORT INFORMATION
  Report Type: 
  Country: None (occurrence: None)
  Receive Date: 20060602
  Receipt Date: 20060602
  Transmission Date: 20061013
  Serious: Yes (Hospitalization)
  Sender: FDA-Public Use
  Company Number: None

PATIENT
  Age: 66 Year
  Sex: Female
  Weight: 53.5244 kg

DRUGS (4)
  1. TOPOTECAN [Suspect]
     Indication: OVARIAN CANCER
     Dosage: 3.5MG/M2  WEEKLY X 3 IV DRIP
     Route: 041
     Dates: start: 20060511, end: 20060525
  2. TOPOTECAN [Suspect]
     Indication: RECURRENT CANCER
     Dosage: 3.5MG/M2  WEEKLY X 3 IV DRIP
     Route: 041
     Dates: start: 20060511, end: 20060525
  3. TAXOTERE [Suspect]
     Indication: OVARIAN CANCER
     Dosage: 30MG/M2  WEEKLY X 3   IV DRIP
     Route: 041
     Dates: start: 20060511, end: 20060525
  4. TAXOTERE [Suspect]
     Indication: RECURRENT CANCER
     Dosage: 30MG/M2  WEEKLY X 3   IV DRIP
     Route: 041
     Dates: start: 20060511, end: 20060525

REACTIONS (2)
  - ABDOMINAL DISTENSION [None]
  - ASCITES [None]
